FAERS Safety Report 8472993-7 (Version None)
Quarter: 2012Q2

REPORT INFORMATION
  Report Type: 
  Country: None (occurrence: None)
  Receive Date: 20120627
  Receipt Date: 20120615
  Transmission Date: 20120825
  Serious: No
  Sender: FDA-Public Use
  Company Number: US-ASTRAZENECA-2012SE29035

PATIENT
  Age: 68 Year
  Sex: Female

DRUGS (2)
  1. TRIAMTERENE AND HYDROCHLOROTHIAZIDE [Concomitant]
  2. TOPROL-XL [Suspect]
     Dosage: GENERIC
     Route: 048

REACTIONS (2)
  - HEART RATE INCREASED [None]
  - BLOOD PRESSURE INCREASED [None]
